FAERS Safety Report 9359996 (Version 1)
Quarter: 2013Q2

REPORT INFORMATION
  Report Type: Spontaneous
  Country: US (occurrence: None)
  Receive Date: 20130620
  Receipt Date: 20130620
  Transmission Date: 20140414
  Serious: Yes (Death, Other)
  Sender: FDA-Public Use
  Company Number: None

PATIENT
  Age: 55 Year
  Sex: Male
  Weight: 161.48 kg

DRUGS (2)
  1. DIGOXIN 0.125MG WALGREEN [Suspect]
     Indication: ATRIAL FIBRILLATION
     Dates: start: 20120114, end: 20120617
  2. VERAPAMIL 100MG [Suspect]
     Indication: ATRIAL FIBRILLATION
     Dates: start: 20120616, end: 20120617

REACTIONS (4)
  - Haemorrhagic stroke [None]
  - Brain death [None]
  - Headache [None]
  - Cerebral thrombosis [None]
